FAERS Safety Report 7626636 (Version 2)
Quarter: 2014Q1

REPORT INFORMATION
  Report Type: Spontaneous
  Country: US (occurrence: US)
  Receive Date: 20101013
  Receipt Date: 20140129
  Transmission Date: 20141002
  Serious: No
  Sender: FDA-Public Use
  Company Number: US-ASTRAZENECA-2010SE16819

PATIENT
  Age: 660 Month
  Sex: Female

DRUGS (6)
  1. SYMBICORT PMDI [Suspect]
     Indication: ASTHMA
     Dosage: 640 MCG, ONCE PUFF BID
     Route: 055
     Dates: start: 2010
  2. SYMBICORT PMDI [Suspect]
     Indication: ASTHMA
     Dosage: 640 MCG, TWO PUFFS BID
     Route: 055
     Dates: start: 201003
  3. NEXIUM [Suspect]
     Indication: GASTROOESOPHAGEAL REFLUX DISEASE
     Route: 048
  4. HUMIRA [Concomitant]
     Indication: RHEUMATOID ARTHRITIS
  5. VENTOLIN [Concomitant]
     Indication: ASTHMA
  6. ALLERGY SHOTS [Concomitant]

REACTIONS (5)
  - Dyspnoea exertional [Unknown]
  - Chest discomfort [Unknown]
  - Burning sensation [Unknown]
  - Paraesthesia [Unknown]
  - Intentional drug misuse [Unknown]
